FAERS Safety Report 10689342 (Version 1)
Quarter: 2015Q1

REPORT INFORMATION
  Report Type: Spontaneous
  Country: US (occurrence: None)
  Receive Date: 20150102
  Receipt Date: 20150102
  Transmission Date: 20150720
  Serious: Yes (Death)
  Sender: FDA-Public Use
  Company Number: None

PATIENT
  Age: 73 Year
  Sex: Female
  Weight: 113 kg

DRUGS (16)
  1. MAGNESIUM OXIDE. [Concomitant]
     Active Substance: MAGNESIUM OXIDE
  2. LIRAGLUTIDE [Concomitant]
     Active Substance: LIRAGLUTIDE
  3. TRAMDOL [Concomitant]
  4. DILTIAZEM [Concomitant]
     Active Substance: DILTIAZEM
  5. IRON SUPPLEMENT [Concomitant]
     Active Substance: IRON
  6. NAPROXEN. [Concomitant]
     Active Substance: NAPROXEN
  7. TELMISARTAN. [Concomitant]
     Active Substance: TELMISARTAN
  8. ENBREL [Concomitant]
     Active Substance: ETANERCEPT
  9. VERPAMIL [Concomitant]
     Active Substance: VERAPAMIL HYDROCHLORIDE
  10. LACTOBACILLUS [Concomitant]
     Active Substance: LACTOBACILLUS ACIDOPHILUS
  11. SIMVASTATIN. [Concomitant]
     Active Substance: SIMVASTATIN
  12. SYNTHROID [Concomitant]
     Active Substance: LEVOTHYROXINE SODIUM
  13. SITAGLIPTIN.METFORMIN [Concomitant]
  14. ELIQUIS [Suspect]
     Active Substance: APIXABAN
     Indication: ATRIAL FIBRILLATION
     Dosage: 1 TABLET BID ORAL
     Route: 048
     Dates: start: 20141113, end: 20141230
  15. GLIMEPIRIDE. [Concomitant]
     Active Substance: GLIMEPIRIDE
  16. HYDROCHLOROTHIAZIDE. [Concomitant]
     Active Substance: HYDROCHLOROTHIAZIDE

REACTIONS (5)
  - Dizziness [None]
  - Heart rate increased [None]
  - Rectal haemorrhage [None]
  - Refusal of treatment by patient [None]
  - Constipation [None]

NARRATIVE: CASE EVENT DATE: 20141230
